FAERS Safety Report 20940091 (Version 1)
Quarter: 2022Q2

REPORT INFORMATION
  Report Type: Spontaneous
  Country: US (occurrence: None)
  Receive Date: 20220609
  Receipt Date: 20220609
  Transmission Date: 20220721
  Serious: Yes (Death)
  Sender: FDA-Public Use
  Company Number: None

PATIENT
  Age: 99 Year
  Sex: Male

DRUGS (1)
  1. VELTASSA [Suspect]
     Active Substance: PATIROMER
     Dosage: 8.4GRAMS ONCE DAILY ORAL? ?
     Route: 048
     Dates: start: 20200914, end: 20220205

REACTIONS (1)
  - Death [None]

NARRATIVE: CASE EVENT DATE: 20220502
